FAERS Safety Report 6410543-7 (Version None)
Quarter: 2009Q4

REPORT INFORMATION
  Report Type: 
  Country: None (occurrence: None)
  Receive Date: 20091022
  Receipt Date: 20091019
  Transmission Date: 20100525
  Serious: Yes (Hospitalization)
  Sender: FDA-Public Use
  Company Number: FR-BRISTOL-MYERS SQUIBB COMPANY-14822936

PATIENT
  Age: 62 Year
  Sex: Male

DRUGS (7)
  1. APROVEL FILM-COATED TABS 300 MG [Suspect]
     Indication: HYPERTENSION
     Dosage: DOSE DECREASED TO 150MG/D ON 16-SEP-2009
     Dates: start: 20090901, end: 20090919
  2. TARDYFERON [Concomitant]
  3. LASILIX [Concomitant]
     Dosage: 500MG SPECIAL
  4. OROCAL [Concomitant]
  5. KARDEGIC [Concomitant]
  6. HUMIRA [Concomitant]
  7. EPREX [Concomitant]

REACTIONS (2)
  - ANGLE CLOSURE GLAUCOMA [None]
  - HYPERTENSIVE CRISIS [None]
